FAERS Safety Report 19714794 (Version 1)
Quarter: 2021Q3

REPORT INFORMATION
  Report Type: Spontaneous
  Country: US (occurrence: US)
  Receive Date: 20210818
  Receipt Date: 20210818
  Transmission Date: 20211014
  Serious: Yes (Hospitalization, Other)
  Sender: FDA-Public Use
  Company Number: US-ACCORD-235595

PATIENT
  Sex: Male
  Weight: 65.32 kg

DRUGS (4)
  1. ELIQUIS [Concomitant]
     Active Substance: APIXABAN
  2. BICALUTAMIDE. [Suspect]
     Active Substance: BICALUTAMIDE
     Indication: PROSTATE CANCER
     Dosage: ONCE DAY, 3 ? 50MG TABLETS
     Route: 048
     Dates: start: 20210727, end: 20210806
  3. COLECALCIFEROL [Concomitant]
     Active Substance: CHOLECALCIFEROL
  4. ASCORBIC ACID. [Concomitant]
     Active Substance: ASCORBIC ACID

REACTIONS (6)
  - Haemorrhage [Unknown]
  - Fracture [Unknown]
  - Hot flush [Unknown]
  - Weight decreased [Unknown]
  - Fall [Unknown]
  - Hallucination [Unknown]
